FAERS Safety Report 19359784 (Version 1)
Quarter: 2021Q2

REPORT INFORMATION
  Report Type: Report from Study
  Country: IN (occurrence: IN)
  Receive Date: 20210601
  Receipt Date: 20210601
  Transmission Date: 20210717
  Serious: Yes (Death)
  Sender: FDA-Public Use
  Company Number: NVSC2020IN344771

PATIENT
  Age: 47 Year
  Sex: Female

DRUGS (3)
  1. SPEXIB [Suspect]
     Active Substance: CERITINIB
     Dosage: 450 MG, QD
     Route: 048
     Dates: start: 20210303
  2. SPEXIB [Suspect]
     Active Substance: CERITINIB
     Indication: NON-SMALL CELL LUNG CANCER
     Dosage: 450 MG, QD
     Route: 065
     Dates: start: 20190213, end: 20210428
  3. SPEXIB [Suspect]
     Active Substance: CERITINIB
     Indication: ANAPLASTIC LYMPHOMA KINASE GENE MUTATION
     Dosage: 450 MG, QD
     Route: 048
     Dates: start: 20191203, end: 20201226

REACTIONS (2)
  - Therapy non-responder [Not Recovered/Not Resolved]
  - Death [Fatal]

NARRATIVE: CASE EVENT DATE: 20210429
